FAERS Safety Report 4717591-3 (Version None)
Quarter: 2005Q3

REPORT INFORMATION
  Report Type: 
  Country: None (occurrence: None)
  Receive Date: 20050712
  Receipt Date: 20050519
  Transmission Date: 20060218
  Serious: No
  Sender: FDA-Public Use
  Company Number: 2005S1000097

PATIENT
  Age: 83 Year
  Sex: Male

DRUGS (12)
  1. CUBICIN [Suspect]
     Indication: ENDOCARDITIS
     Dosage: 4 MG/KG;Q24H;IV
     Route: 042
     Dates: start: 20050501
  2. VANCOMYCIN [Concomitant]
  3. GENTAMICIN [Concomitant]
  4. ALLOPURINOL [Concomitant]
  5. AMLODIPINE [Concomitant]
  6. IRON [Concomitant]
  7. FUROSEMIDE [Concomitant]
  8. ISOSORBIDE [Concomitant]
  9. LEVOTHYROXINE SODIUM [Concomitant]
  10. LISINOPRIL [Concomitant]
  11. MULTI-VITAMIN [Concomitant]
  12. SENNA [Concomitant]

REACTIONS (1)
  - RENAL FAILURE ACUTE [None]
